FAERS Safety Report 9541911 (Version 1)
Quarter: 2013Q3

REPORT INFORMATION
  Report Type: Spontaneous
  Country: US (occurrence: US)
  Receive Date: 20130923
  Receipt Date: 20130923
  Transmission Date: 20140515
  Serious: Yes (Other)
  Sender: FDA-Public Use
  Company Number: US-ROCHE-1278132

PATIENT
  Sex: Female

DRUGS (3)
  1. HERCEPTIN [Suspect]
     Indication: BREAST CANCER METASTATIC
     Route: 065
  2. PERJETA [Suspect]
     Indication: BREAST CANCER METASTATIC
     Route: 065
  3. TAXOTERE [Concomitant]
     Indication: BREAST CANCER METASTATIC
     Route: 065

REACTIONS (1)
  - Metastases to central nervous system [Unknown]
